FAERS Safety Report 11687471 (Version 2)
Quarter: 2016Q1

REPORT INFORMATION
  Report Type: Spontaneous
  Country: JP (occurrence: JP)
  Receive Date: 20151030
  Receipt Date: 20160128
  Transmission Date: 20160525
  Serious: Yes (Hospitalization, Other)
  Sender: FDA-Public Use
  Company Number: JP-BAUSCH-BL-2015-025773

PATIENT
  Age: 53 Year
  Sex: Female

DRUGS (2)
  1. CISPLATIN. [Suspect]
     Active Substance: CISPLATIN
     Indication: OESOPHAGEAL SQUAMOUS CELL CARCINOMA
     Dosage: 70 MG/M2 DAY 1 EVERY 4 WEEKS
     Route: 065
  2. 5-FLUOROURACIL [Suspect]
     Active Substance: FLUOROURACIL
     Indication: OESOPHAGEAL SQUAMOUS CELL CARCINOMA
     Dosage: 700 MG/M2 DAYS 1-4 EVERY 4 WEEKS
     Route: 065

REACTIONS (3)
  - Oesophageal stenosis [Recovered/Resolved]
  - Oesophagitis [Recovered/Resolved]
  - Oesophageal haemorrhage [Recovered/Resolved]
